FAERS Safety Report 9587746 (Version 1)
Quarter: 2013Q4

REPORT INFORMATION
  Report Type: Report from Study
  Country: AU (occurrence: AU)
  Receive Date: 20131003
  Receipt Date: 20131003
  Transmission Date: 20140711
  Serious: Yes (Hospitalization, Other)
  Sender: FDA-Public Use
  Company Number: AU-VERTEX PHARMACEUTICALS INC-2013-010170

PATIENT
  Age: 33 Year
  Sex: Female
  Weight: 59 kg

DRUGS (11)
  1. TELAPREVIR [Suspect]
     Indication: HEPATITIS C
     Dosage: 750 MG, TID
     Route: 048
     Dates: start: 20130821
  2. PEGASYS [Suspect]
     Indication: HEPATITIS C
     Dosage: 150 ?G, QW
     Route: 065
     Dates: start: 20130821
  3. RIBAVIRIN [Suspect]
     Indication: HEPATITIS C
     Dosage: 1000 MG, QD
     Route: 065
     Dates: start: 20130821
  4. METHADONE HYDROCHLORIDE [Concomitant]
     Indication: DRUG DEPENDENCE
     Dosage: 5 MG/ML, UNK
     Route: 048
  5. LYRICA [Concomitant]
     Indication: BACK PAIN
     Dosage: DOSAGE FORM: CAPSULE
     Route: 048
  6. LYRICA [Concomitant]
     Dosage: DOSAGE FORM: CAPSULE
     Route: 048
  7. MIRTAZAPINE [Concomitant]
     Indication: DEPRESSION
     Dosage: 1 NOCTE
     Route: 048
  8. QUETIAPINE FUMARATE [Concomitant]
     Indication: BIPOLAR DISORDER
     Dosage: DOSAGE FORM: TABLET, 1 NOCTE
     Route: 048
  9. VENTOLINE INHALER [Concomitant]
     Indication: ASTHMA
     Dosage: 2 PUFFS Q.4 H
     Route: 055
  10. ZOLOFT [Concomitant]
     Indication: DEPRESSION
     Dosage: DOSAGE FORM: TABLET, 1-2 DAILY
     Route: 048
  11. ZYPREXA [Concomitant]
     Indication: BIPOLAR DISORDER
     Dosage: DOSAGE FORM: TABLET
     Route: 048

REACTIONS (8)
  - Overdose [Unknown]
  - Hospitalisation [Unknown]
  - Haemoglobin decreased [Unknown]
  - Platelet count decreased [Unknown]
  - Drug dose omission [Unknown]
  - Somnolence [Unknown]
  - Blood urea increased [Unknown]
  - Hypokalaemia [Unknown]
